FAERS Safety Report 4667014-8 (Version None)
Quarter: 2005Q2

REPORT INFORMATION
  Report Type: 
  Country: None (occurrence: None)
  Receive Date: 20050520
  Receipt Date: 20040409
  Transmission Date: 20051028
  Serious: Yes (Other)
  Sender: FDA-Public Use
  Company Number: PHEH2004US04077

PATIENT
  Age: 53 Year
  Sex: Female

DRUGS (32)
  1. EFFEXOR [Concomitant]
     Indication: DEPRESSION
     Dosage: 75 MG, QD
  2. PREVACID [Concomitant]
     Indication: GASTROOESOPHAGEAL REFLUX DISEASE
     Dosage: 30 MG, QD
  3. AMBIEN [Concomitant]
     Indication: SLEEP DISORDER
     Dosage: 10 MG, QHS
  4. ALBUTEROL [Concomitant]
     Indication: DYSPNOEA
     Dosage: PRN
  5. IRINOTECAN HCL [Concomitant]
     Dosage: 178 MG 1 DOSE
  6. LOPERAMIDE HCL [Concomitant]
     Dosage: 2 MG FOR 7 DAYS
     Route: 048
  7. ETOPOSIDE [Concomitant]
     Dosage: 50 MG, UNK
     Route: 048
  8. PROCHLORPERAZINE MALEATE [Concomitant]
     Dosage: 10 MG, UNK
     Route: 048
  9. DIATRIZOIC ACID [Concomitant]
  10. SMZ-TMP [Concomitant]
  11. VENLAFAXINE HCL [Concomitant]
  12. LANSOPRAZOLE [Concomitant]
  13. ZOLPIDEM TARTRATE [Concomitant]
  14. PNEUMOVAX 23 [Concomitant]
  15. INFLUENZA VACCINE [Concomitant]
  16. ADRIAMYCIN PFS [Concomitant]
  17. ZOMETA [Suspect]
     Indication: METASTASES TO BONE
     Dosage: 4 MG OVER 15 MINUTES
     Dates: start: 20020718, end: 20030911
  18. LORAZEPAM [Concomitant]
     Dosage: .5 MG, ONCE/SINGLE OVER 8 HOURS
     Route: 042
     Dates: start: 20030327, end: 20030327
  19. DEXAMETHASONE [Concomitant]
     Dosage: 4-20MG X 11 TREATMENTS
  20. DIPHENHYDRAMINE HCL [Concomitant]
     Dosage: 50 MG OVER 5 MINUTES
     Dates: start: 20030116, end: 20030227
  21. FILGRASTIM [Concomitant]
     Dosage: 300 MCG X 3 TREATMENTS
     Dates: start: 20030626, end: 20030814
  22. GRANISETRON  HCL [Concomitant]
     Dosage: 2 MG X 7 TREATMENTS
     Dates: start: 20030327, end: 20030814
  23. ONDANSETRON [Concomitant]
     Dosage: 8 MG X 3 TREATMENTS
     Dates: start: 20030327, end: 20030814
  24. RANITIDINE HYDROCHLORIDE [Concomitant]
     Dosage: 50 MG OVER 20 MINUTES
     Dates: start: 20030116, end: 20030227
  25. CAPECITABINE [Concomitant]
     Dosage: 500 MG X  6 TREATMENTS
     Dates: start: 20010111, end: 20010611
  26. DEXRAZOXANE [Concomitant]
     Dosage: 1062 MG OVER 20 MINUTES
     Dates: start: 20030717, end: 20030814
  27. FULVESTRANT [Concomitant]
     Dosage: 250 MG X 3 TREATMENTS
     Dates: start: 20021003, end: 20021202
  28. GEMCITABINE HYDROCHLORIDE [Concomitant]
     Dosage: 1456 MG, ONCE/SINGLE OVER 30 MIN
     Dates: start: 20030911, end: 20030911
  29. TAXOL [Concomitant]
     Dosage: 141 MG OVER 1HOUR
     Dates: start: 20030116, end: 20030306
  30. VINORELBINE TARTRATE [Concomitant]
     Dosage: 47 MG X 32 TREATMENTS
     Dates: start: 20011129, end: 20020919
  31. DOXORUBICIN HCL [Concomitant]
     Dosage: 106 MG X 7 TREATMENTS
     Dates: start: 20030327, end: 20030814
  32. AREDIA [Suspect]
     Dosage: 90 MG OVER 1-2 HOURS
     Dates: start: 19960101, end: 20020620

REACTIONS (5)
  - FATIGUE [None]
  - ORAL MUCOSAL BLISTERING [None]
  - ORAL PAIN [None]
  - OSTEONECROSIS [None]
  - TOOTH EXTRACTION [None]
